FAERS Safety Report 7685793-2 (Version None)
Quarter: 2011Q3

REPORT INFORMATION
  Report Type: 
  Country: None (occurrence: None)
  Receive Date: 20110815
  Receipt Date: 20110815
  Transmission Date: 20111222
  Serious: Yes (Life-Threatening, Hospitalization, Disabling, Other)
  Sender: FDA-Public Use
  Company Number: None

PATIENT
  Sex: Male
  Weight: 80 kg

DRUGS (1)
  1. PROPECIA [Suspect]
     Indication: ALOPECIA
     Dosage: 1 MG
     Route: 048
     Dates: start: 20010201, end: 20040206

REACTIONS (8)
  - MUSCLE TWITCHING [None]
  - DEPRESSED MOOD [None]
  - DYSKINESIA [None]
  - TESTICULAR DISORDER [None]
  - PROSTATIC DISORDER [None]
  - SLEEP DISORDER [None]
  - LOSS OF LIBIDO [None]
  - ANXIETY [None]
